FAERS Safety Report 9589945 (Version 1)
Quarter: 2013Q4

REPORT INFORMATION
  Report Type: Spontaneous
  Country: US (occurrence: US)
  Receive Date: 20131003
  Receipt Date: 20131003
  Transmission Date: 20140711
  Serious: No
  Sender: FDA-Public Use
  Company Number: US-AMGEN-USASP2012073347

PATIENT
  Sex: Female
  Weight: 90.7 kg

DRUGS (8)
  1. ENBREL [Suspect]
     Indication: RHEUMATOID ARTHRITIS
     Dosage: UNK
  2. ORENCIA [Concomitant]
     Dosage: UNK
     Route: 058
  3. METHOTREXATE [Concomitant]
     Dosage: UNK
  4. VALTREX [Concomitant]
     Dosage: UNK
  5. VITAMIN D                          /00107901/ [Concomitant]
     Dosage: UNK
  6. APRI [Concomitant]
     Dosage: UNK
  7. VITAMIN C                          /00008001/ [Concomitant]
     Dosage: UNK
  8. FOLIC ACID [Concomitant]
     Dosage: UNK

REACTIONS (1)
  - Drug hypersensitivity [Not Recovered/Not Resolved]
